FAERS Safety Report 9993701 (Version 2)
Quarter: 2014Q1

REPORT INFORMATION
  Report Type: Spontaneous
  Country: US (occurrence: US)
  Receive Date: 20140310
  Receipt Date: 20140310
  Transmission Date: 20141002
  Serious: No
  Sender: FDA-Public Use
  Company Number: US-AMGEN-USASP2013046894

PATIENT
  Age: 83 Year
  Sex: Female
  Weight: 67.12 kg

DRUGS (2)
  1. SENSIPAR [Suspect]
     Indication: BLOOD CALCIUM INCREASED
     Dosage: 30 MG, QD
     Route: 065
     Dates: start: 201303
  2. SENSIPAR [Suspect]
     Indication: PARATHYROID DISORDER

REACTIONS (5)
  - Fatigue [Recovering/Resolving]
  - Dizziness [Unknown]
  - Somnolence [Unknown]
  - Weight increased [Unknown]
  - Decreased interest [Unknown]
